FAERS Safety Report 16310290 (Version 9)
Quarter: 2019Q3

REPORT INFORMATION
  Report Type: Report from Study
  Country: US (occurrence: US)
  Receive Date: 20190514
  Receipt Date: 20190917
  Transmission Date: 20191004
  Serious: Yes (Hospitalization)
  Sender: FDA-Public Use
  Company Number: US-ACTELION-A-NJ2019-190293

PATIENT
  Sex: Female
  Weight: 53.97 kg

DRUGS (8)
  1. TYVASO [Suspect]
     Active Substance: TREPROSTINIL
     Dosage: 12 BREATHS/MIN, QID
     Route: 055
     Dates: start: 20190502
  2. LASIX [Concomitant]
     Active Substance: FUROSEMIDE
  3. TYVASO [Suspect]
     Active Substance: TREPROSTINIL
     Indication: PRODUCT USED FOR UNKNOWN INDICATION
     Dosage: 6 BREATHS/MIN
     Route: 055
  4. TYVASO [Suspect]
     Active Substance: TREPROSTINIL
     Dosage: 11 BREATHS/MIN, QID
     Route: 055
     Dates: start: 20190502
  5. TYVASO [Suspect]
     Active Substance: TREPROSTINIL
     Dosage: 9 BREATHS/MIN
     Route: 055
     Dates: start: 20190502
  6. SILDENAFIL CITRATE. [Concomitant]
     Active Substance: SILDENAFIL CITRATE
  7. ELIQUIS [Concomitant]
     Active Substance: APIXABAN
  8. OPSUMIT [Suspect]
     Active Substance: MACITENTAN
     Indication: PULMONARY ARTERIAL HYPERTENSION
     Dosage: 10 MG, QD
     Route: 048

REACTIONS (18)
  - Sputum discoloured [Unknown]
  - Chest discomfort [Unknown]
  - Pulmonary arterial hypertension [Unknown]
  - Headache [Unknown]
  - Abdominal pain upper [Unknown]
  - Cough [Unknown]
  - Feeling abnormal [Unknown]
  - Dehydration [Unknown]
  - Oropharyngeal pain [Unknown]
  - Malaise [Unknown]
  - Tremor [Unknown]
  - Productive cough [Unknown]
  - Nausea [Unknown]
  - Blood pressure decreased [Unknown]
  - Breath sounds abnormal [Unknown]
  - Weight increased [Unknown]
  - Fluid retention [Unknown]
  - Rales [Unknown]
